FAERS Safety Report 24073886 (Version 1)
Quarter: 2024Q3

REPORT INFORMATION
  Report Type: Spontaneous
  Country: US (occurrence: US)
  Receive Date: 20240710
  Receipt Date: 20240710
  Transmission Date: 20241017
  Serious: No
  Sender: PFIZER
  Company Number: US-PFIZER INC-PV202400089950

PATIENT
  Age: 84 Year
  Sex: Female
  Weight: 55.3 kg

DRUGS (4)
  1. IBRANCE [Suspect]
     Active Substance: PALBOCICLIB
     Indication: Breast cancer metastatic
     Dosage: TAKE DAILY FOR 21 DAYS HOLD 7 DAYS
  2. LETROZOLE [Concomitant]
     Active Substance: LETROZOLE
  3. FASLODEX [Concomitant]
     Active Substance: FULVESTRANT
  4. PRILOSEC [Concomitant]
     Active Substance: OMEPRAZOLE MAGNESIUM

REACTIONS (7)
  - White blood cell count decreased [Unknown]
  - Haemoglobin decreased [Unknown]
  - Platelet count decreased [Unknown]
  - Neutrophil count decreased [Unknown]
  - COVID-19 [Unknown]
  - Tooth disorder [Unknown]
  - Neoplasm progression [Unknown]
